FAERS Safety Report 10260874 (Version 1)
Quarter: 2014Q2

REPORT INFORMATION
  Report Type: Spontaneous
  Country: NL (occurrence: None)
  Receive Date: 20140623
  Receipt Date: 20140623
  Transmission Date: 20141212
  Serious: Yes (Other)
  Sender: FDA-Public Use
  Company Number: AXC-2014-000383

PATIENT
  Age: 20 Year
  Sex: Female

DRUGS (1)
  1. URSODEOXYCHOLIC ACID (URSODEOXYCHOLIC ACID) UNKNOWN) [Suspect]
     Indication: PRODUCT USED FOR UNKNOWN INDICATION
     Dosage: TWO TIMES 300 MG, QD, ORAL
     Route: 048

REACTIONS (4)
  - Maternal exposure during pregnancy [None]
  - HELLP syndrome [None]
  - Hepatic failure [None]
  - Pre-eclampsia [None]
